FAERS Safety Report 5486617-4 (Version None)
Quarter: 2007Q3

REPORT INFORMATION
  Report Type: 
  Country: None (occurrence: None)
  Receive Date: 20070925
  Receipt Date: 20070625
  Transmission Date: 20080115
  Serious: No
  Sender: FDA-Public Use
  Company Number: 2007US000930

PATIENT
  Age: 55 Year
  Sex: Female

DRUGS (6)
  1. VESICARE [Suspect]
     Indication: HYPERTONIC BLADDER
     Dosage: 5 MG, UID/QD, 5 MG, UID/QD
     Dates: start: 20060701, end: 20060901
  2. VESICARE [Suspect]
     Indication: HYPERTONIC BLADDER
     Dosage: 5 MG, UID/QD, 5 MG, UID/QD
     Dates: start: 20070101, end: 20070301
  3. GLUCOSAMINE (COD-LIVER OIL) [Concomitant]
  4. FISH OIL [Concomitant]
  5. IBUPROFEN [Concomitant]
  6. MULTI-VIT (VITAMINS NOS) [Concomitant]

REACTIONS (4)
  - CONSTIPATION [None]
  - DRY EYE [None]
  - FAECAL INCONTINENCE [None]
  - FATIGUE [None]
